FAERS Safety Report 17445913 (Version 5)
Quarter: 2021Q4

REPORT INFORMATION
  Report Type: Report from Study
  Country: GB (occurrence: GB)
  Receive Date: 20200221
  Receipt Date: 20211001
  Transmission Date: 20220303
  Serious: Yes (Hospitalization)
  Sender: FDA-Public Use
  Company Number: GB-FEDR-MF-002-5011001-20200212-0001SG

PATIENT
  Age: 69 Year
  Sex: Male
  Weight: 75 kg

DRUGS (13)
  1. FEDRATINIB [Suspect]
     Active Substance: FEDRATINIB
     Indication: Primary myelofibrosis
     Dosage: 400 MG X 1 X 1 DAYS
     Route: 048
     Dates: start: 20191219, end: 20200114
  2. ALLOPURINOL [Concomitant]
     Active Substance: ALLOPURINOL
     Indication: Gout
     Dosage: 400 MG X 1 X 1 DAYS
     Route: 048
     Dates: start: 201709, end: 20200120
  3. ALLOPURINOL [Concomitant]
     Active Substance: ALLOPURINOL
     Indication: Gout
     Dosage: 300 MG X 1 X 1 DAYS
     Route: 048
     Dates: start: 20200120
  4. ALLOPURINOL [Concomitant]
     Active Substance: ALLOPURINOL
     Indication: Adverse event
     Dosage: 100 MG X 1 X 1 DAYS
     Route: 048
     Dates: start: 20200528
  5. ATORVASTATIN CALCIUM [Concomitant]
     Active Substance: ATORVASTATIN CALCIUM
     Indication: Hyperlipidaemia
     Dosage: 40 MG X 1 X 1 DAYS
     Route: 048
     Dates: start: 201303, end: 20200117
  6. FEXOFENADINE [Concomitant]
     Active Substance: FEXOFENADINE HYDROCHLORIDE
     Indication: Pruritus
     Dosage: 180 MG X 1 X 1 DAYS
     Route: 048
     Dates: start: 201911, end: 20191222
  7. ACETAMINOPHEN [Concomitant]
     Active Substance: ACETAMINOPHEN
     Indication: Analgesic therapy
     Dosage: 500 MG X PRN
     Route: 048
  8. RAMIPRIL [Concomitant]
     Active Substance: RAMIPRIL
     Indication: Hypertension
     Dosage: 5 MG X 1 X 1 DAYS
     Route: 048
     Dates: start: 200807
  9. RANITIDINE [Concomitant]
     Active Substance: RANITIDINE
     Indication: Hiatus hernia
     Dosage: 300 MG X 1 X 1 DAYS
     Route: 048
     Dates: start: 2015, end: 20200114
  10. RANITIDINE [Concomitant]
     Active Substance: RANITIDINE
     Indication: Hiatus hernia
     Dosage: 150 MG X 1 X 1 DAYS
     Route: 048
     Dates: start: 20200120
  11. MAGNESIUM SULFATE [Concomitant]
     Active Substance: MAGNESIUM SULFATE
     Indication: Hypomagnesaemia
     Dosage: 20 MMOL MMOL X ONCE
     Route: 042
     Dates: start: 20200114, end: 20200114
  12. PREDNISOLONE [Concomitant]
     Active Substance: PREDNISOLONE
     Indication: Primary myelofibrosis
     Dosage: 3 MG X 1 X 1 DAYS
     Route: 048
     Dates: start: 20191219, end: 20191230
  13. PREDNISOLONE [Concomitant]
     Active Substance: PREDNISOLONE
     Indication: Primary myelofibrosis
     Dosage: 2 MG X 1 X 1 DAYS
     Route: 048
     Dates: start: 20191231, end: 20200114

REACTIONS (1)
  - Hyperkalaemia [Recovered/Resolved]

NARRATIVE: CASE EVENT DATE: 20200114
